FAERS Safety Report 6501187-7 (Version None)
Quarter: 2009Q4

REPORT INFORMATION
  Report Type: 
  Country: None (occurrence: None)
  Receive Date: 20091216
  Receipt Date: 20090911
  Transmission Date: 20100525
  Serious: No
  Sender: FDA-Public Use
  Company Number: A0806977A

PATIENT
  Age: 54 Year
  Sex: Male

DRUGS (4)
  1. COMMIT [Suspect]
     Route: 048
     Dates: start: 20090910
  2. CALCIUM WITH VITAMIN D [Concomitant]
  3. GERITOL COMPLETE [Concomitant]
  4. UNKNOWN MEDICATION [Concomitant]
     Indication: CHRONIC OBSTRUCTIVE PULMONARY DISEASE

REACTIONS (1)
  - ABDOMINAL DISCOMFORT [None]
